FAERS Safety Report 10004096 (Version 2)
Quarter: 2014Q1

REPORT INFORMATION
  Report Type: Spontaneous
  Country: BE (occurrence: BE)
  Receive Date: 20140312
  Receipt Date: 20140314
  Transmission Date: 20141002
  Serious: Yes (Life-Threatening, Hospitalization)
  Sender: FDA-Public Use
  Company Number: BE-B.I. PHARMACEUTICALS,INC./RIDGEFIELD-2014-BI-10266BL

PATIENT
  Age: 85 Year
  Sex: Male
  Weight: 59 kg

DRUGS (3)
  1. PRADAXA [Suspect]
     Indication: ATRIAL FIBRILLATION
     Dosage: 220 MG
     Route: 065
     Dates: start: 201305, end: 20140218
  2. CORDARONE [Concomitant]
     Route: 065
     Dates: start: 201302
  3. BISOPROLOL [Concomitant]
     Dosage: 5 MG
     Route: 065
     Dates: start: 201302

REACTIONS (2)
  - Haematochezia [Recovered/Resolved]
  - Diverticulum [Recovered/Resolved]
